FAERS Safety Report 5997212-2 (Version None)
Quarter: 2008Q4

REPORT INFORMATION
  Report Type: 
  Country: None (occurrence: None)
  Receive Date: 20081212
  Receipt Date: 20081105
  Transmission Date: 20090506
  Serious: No
  Sender: FDA-Public Use
  Company Number: US-ABBOTT-08P-163-0485906-00

PATIENT
  Sex: Female
  Weight: 65.83 kg

DRUGS (7)
  1. HUMIRA [Suspect]
     Indication: RHEUMATOID ARTHRITIS
     Route: 058
     Dates: start: 20070801
  2. HUMIRA [Suspect]
     Route: 058
     Dates: start: 20081001
  3. METHOTREXATE [Concomitant]
     Indication: RHEUMATOID ARTHRITIS
  4. PREDNISONE TAB [Concomitant]
     Indication: RHEUMATOID ARTHRITIS
  5. NIFEDIPINE [Concomitant]
     Indication: HYPERTENSION
  6. METOPROLOL SUCCINATE [Concomitant]
     Indication: HYPERTENSION
  7. VALSARTAN [Concomitant]
     Indication: HYPERTENSION

REACTIONS (4)
  - DEEP VEIN THROMBOSIS [None]
  - INJECTION SITE PAIN [None]
  - PAIN IN EXTREMITY [None]
  - THROMBOSIS [None]
